FAERS Safety Report 4939115-8 (Version None)
Quarter: 2006Q1

REPORT INFORMATION
  Report Type: 
  Country: None (occurrence: None)
  Receive Date: 20060306
  Receipt Date: 20060221
  Transmission Date: 20060701
  Serious: Yes (Other)
  Sender: FDA-Public Use
  Company Number: MEDI-0004212

PATIENT
  Age: 78 Year
  Sex: Male

DRUGS (3)
  1. ETHYOL [Suspect]
     Indication: CHEMOTHERAPY
     Dosage: SUBCUTANEOUS
     Route: 058
  2. TAXOL [Concomitant]
  3. RADIATION THERAPY [Concomitant]

REACTIONS (1)
  - CARDIAC FAILURE CONGESTIVE [None]
